FAERS Safety Report 16937832 (Version 2)
Quarter: 2019Q4

REPORT INFORMATION
  Report Type: Report from Study
  Country: US (occurrence: US)
  Receive Date: 20191018
  Receipt Date: 20191028
  Transmission Date: 20200122
  Serious: Yes (Other)
  Sender: FDA-Public Use
  Company Number: US-VIIV HEALTHCARE LIMITED-US2019GSK189054

PATIENT
  Age: 33 Year
  Sex: Female

DRUGS (2)
  1. DESCOVY [Suspect]
     Active Substance: EMTRICITABINE\TENOFOVIR ALAFENAMIDE FUMARATE
     Indication: HIV INFECTION
     Dosage: 1 DF, UNK, TAB PER CAPS
     Route: 048
     Dates: start: 20190801
  2. DOLUTEGRAVIR [Suspect]
     Active Substance: DOLUTEGRAVIR
     Indication: HIV INFECTION
     Dosage: 1 DF, UNK, TAB PER CAPS
     Route: 048
     Dates: start: 20190801

REACTIONS (4)
  - Premature labour [Unknown]
  - Amniotic cavity infection [Unknown]
  - Stillbirth [Unknown]
  - Exposure during pregnancy [Unknown]
